FAERS Safety Report 8884075 (Version 1)
Quarter: 2012Q4

REPORT INFORMATION
  Report Type: 
  Country: US (occurrence: US)
  Receive Date: 20121104
  Receipt Date: 20121104
  Transmission Date: 20130627
  Serious: No
  Sender: FDA-Public Use
  Company Number: US-ASTRAZENECA-2012SE80520

PATIENT
  Sex: Female

DRUGS (5)
  1. NEXIUM [Suspect]
     Indication: GASTROOESOPHAGEAL REFLUX DISEASE
     Route: 048
  2. NEXIUM [Suspect]
     Indication: BARRETT^S OESOPHAGUS
     Route: 048
  3. PROTONIX [Suspect]
     Route: 065
  4. BISMUTH SUBSALICYLATE [Suspect]
     Route: 065
  5. TUMS [Suspect]
     Route: 065

REACTIONS (5)
  - Pain [Unknown]
  - Gastrooesophageal reflux disease [Unknown]
  - Discomfort [Unknown]
  - Vomiting [Unknown]
  - Intentional drug misuse [Unknown]
